FAERS Safety Report 20576915 (Version 1)
Quarter: 2022Q1

REPORT INFORMATION
  Report Type: Spontaneous
  Country: CA (occurrence: None)
  Receive Date: 20220310
  Receipt Date: 20220310
  Transmission Date: 20220423
  Serious: Yes (Death, Other)
  Sender: FDA-Public Use
  Company Number: CA-MICRO LABS LIMITED-ML2022-00791

PATIENT
  Age: 2 Day
  Weight: 1.545 kg

DRUGS (1)
  1. TELMISARTAN [Suspect]
     Active Substance: TELMISARTAN

REACTIONS (2)
  - Angiotensin converting enzyme inhibitor foetopathy [Fatal]
  - Foetal exposure during pregnancy [Unknown]
